FAERS Safety Report 16592381 (Version 1)
Quarter: 2019Q3

REPORT INFORMATION
  Report Type: Spontaneous
  Country: US (occurrence: US)
  Receive Date: 20190718
  Receipt Date: 20190718
  Transmission Date: 20191004
  Serious: Yes (Other)
  Sender: FDA-Public Use
  Company Number: PHHY2019US162722

PATIENT
  Age: 75 Year
  Sex: Male

DRUGS (4)
  1. GANCICLOVIR. [Suspect]
     Active Substance: GANCICLOVIR
     Dosage: 0.15 %, TID
     Route: 047
  2. MOXIFLOXACIN. [Suspect]
     Active Substance: MOXIFLOXACIN
     Indication: PUNCTATE KERATITIS
     Dosage: 0.5 %, TID
     Route: 047
  3. GANCICLOVIR. [Suspect]
     Active Substance: GANCICLOVIR
     Indication: PUNCTATE KERATITIS
     Dosage: 0.15 %, 5QD
     Route: 047
  4. FAMCICLOVIR SANDOZ [Suspect]
     Active Substance: FAMCICLOVIR
     Indication: PUNCTATE KERATITIS
     Dosage: 500 MG, TID
     Route: 048

REACTIONS (4)
  - Thrombocytopenia [Unknown]
  - Punctate keratitis [Unknown]
  - Disease recurrence [Unknown]
  - Product use in unapproved indication [Unknown]
